FAERS Safety Report 26200126 (Version 1)
Quarter: 2025Q4

REPORT INFORMATION
  Report Type: Spontaneous
  Country: RU (occurrence: RU)
  Receive Date: 20251225
  Receipt Date: 20251225
  Transmission Date: 20260118
  Serious: Yes (Death, Other)
  Sender: ALEXION PHARMACEUTICALS
  Company Number: RU-ASTRAZENECA-202512EAF022067RU

PATIENT
  Age: 1 Month
  Sex: Female
  Weight: 3.7 kg

DRUGS (2)
  1. PULMICORT TURBUHALER [Suspect]
     Active Substance: BUDESONIDE
     Dosage: 125 MICROGRAM, BID
     Route: 065
  2. CEFOTAXIME [Concomitant]
     Active Substance: CEFOTAXIME SODIUM
     Dosage: 200 MG TWICE DAILY

REACTIONS (7)
  - Condition aggravated [Fatal]
  - Off label use [Unknown]
  - Vomiting [Unknown]
  - Cough [Unknown]
  - Erythema [Unknown]
  - Dyspnoea [Unknown]
  - Swelling face [Unknown]
